FAERS Safety Report 7851961-X (Version None)
Quarter: 2011Q4

REPORT INFORMATION
  Report Type: 
  Country: None (occurrence: None)
  Receive Date: 20111026
  Receipt Date: 20111013
  Transmission Date: 20120403
  Serious: Yes (Congenital Anomaly)
  Sender: FDA-Public Use
  Company Number: GB-ELI_LILLY_AND_COMPANY-GB201110002925

PATIENT

DRUGS (12)
  1. FLUOXETINE [Suspect]
     Dosage: 20 MG, QD
     Route: 064
  2. FERROUS FUMARATE [Concomitant]
     Dosage: 210 MG, BID
     Route: 064
  3. LEVOTHYROXINE SODIUM [Concomitant]
     Indication: HYPOTHYROIDISM
     Dosage: 75 UG, QD
     Route: 064
  4. SULFASALAZINE [Concomitant]
     Dosage: 1 G, BID
     Route: 064
  5. LEVOTHYROXINE SODIUM [Concomitant]
     Dosage: 75 UG, QD
     Route: 064
  6. FLUOXETINE [Suspect]
     Dosage: 60 MG, UNK
     Route: 064
  7. FERROUS FUMARATE [Concomitant]
     Indication: ANAEMIA
     Dosage: 210 MG, BID
     Route: 064
  8. QVAR 40 [Concomitant]
     Indication: ASTHMA
     Dosage: 2 DF, BID
     Route: 064
  9. FLUOXETINE [Suspect]
     Indication: DEPRESSION
     Dosage: 60 MG, UNK
     Route: 064
  10. SULFASALAZINE [Concomitant]
     Indication: ARTHROPATHY
     Dosage: 1 G, BID
     Route: 064
  11. FLUOXETINE [Suspect]
     Dosage: 20 MG, QD
     Route: 064
  12. QVAR 40 [Concomitant]
     Dosage: 2 DF, BID
     Route: 064

REACTIONS (2)
  - CLEFT PALATE [None]
  - MATERNAL EXPOSURE DURING PREGNANCY [None]
